FAERS Safety Report 19805208 (Version 1)
Quarter: 2021Q3

REPORT INFORMATION
  Report Type: Spontaneous
  Country: US (occurrence: US)
  Receive Date: 20210909
  Receipt Date: 20210909
  Transmission Date: 20211014
  Serious: No
  Sender: FDA-Public Use
  Company Number: US-ASTRAZENECA-2021A694657

PATIENT
  Age: 68 Year
  Sex: Male
  Weight: 136.1 kg

DRUGS (1)
  1. BYDUREON BCISE [Suspect]
     Active Substance: EXENATIDE
     Indication: TYPE 2 DIABETES MELLITUS
     Route: 058
     Dates: start: 2019

REACTIONS (5)
  - Diabetes mellitus inadequate control [Not Recovered/Not Resolved]
  - Device leakage [Unknown]
  - Visual impairment [Not Recovered/Not Resolved]
  - Drug dose omission by device [Not Recovered/Not Resolved]
  - Cataract [Recovered/Resolved]

NARRATIVE: CASE EVENT DATE: 2020
